FAERS Safety Report 7159105-7 (Version None)
Quarter: 2010Q4

REPORT INFORMATION
  Report Type: 
  Country: None (occurrence: None)
  Receive Date: 20101214
  Receipt Date: 20101203
  Transmission Date: 20110411
  Serious: Yes (Other)
  Sender: FDA-Public Use
  Company Number: BR-SANOFI-AVENTIS-2010SA073603

PATIENT
  Sex: Female

DRUGS (5)
  1. LANTUS [Suspect]
     Indication: TYPE 2 DIABETES MELLITUS
     Route: 058
     Dates: start: 20090320
  2. METFORMIN [Concomitant]
     Route: 048
  3. AMINO ACIDS [Concomitant]
     Indication: OSTEOPOROSIS
     Route: 058
     Dates: start: 20100717
  4. INSULIN GLULISINE [Concomitant]
     Route: 058
     Dates: start: 20090320
  5. CALCIUM CARBONATE [Concomitant]
     Indication: OSTEOPOROSIS
     Route: 048

REACTIONS (2)
  - ANAEMIA [None]
  - NON-HODGKIN'S LYMPHOMA [None]
